FAERS Safety Report 5312446-8 (Version None)
Quarter: 2007Q2

REPORT INFORMATION
  Report Type: 
  Country: None (occurrence: None)
  Receive Date: 20070430
  Receipt Date: 20061214
  Transmission Date: 20071010
  Serious: No
  Sender: FDA-Public Use
  Company Number: 2006UW27980

PATIENT
  Age: 80 Year
  Sex: Male
  Weight: 102.1 kg

DRUGS (11)
  1. NEXIUM [Suspect]
     Indication: GASTROOESOPHAGEAL REFLUX DISEASE
     Route: 048
     Dates: start: 20010101
  2. DIOVAN [Concomitant]
  3. HYDROCHLOROTHIAZIDE [Concomitant]
  4. CARDIZEM [Concomitant]
  5. DIGOXIN [Concomitant]
  6. PRAVACHOL [Concomitant]
  7. ACTOS [Concomitant]
  8. ASPIRIN [Concomitant]
  9. NASONEX [Concomitant]
  10. ADVAIR DISKUS 100/50 [Concomitant]
  11. SEREVENT [Concomitant]

REACTIONS (1)
  - POLYP [None]
